FAERS Safety Report 5019588-5 (Version None)
Quarter: 2006Q2

REPORT INFORMATION
  Report Type: 
  Country: None (occurrence: None)
  Receive Date: 20060606
  Receipt Date: 20060512
  Transmission Date: 20061013
  Serious: Yes (Life-Threatening)
  Sender: FDA-Public Use
  Company Number: ZA-MERCK-0605ZAF00017

PATIENT
  Age: 69 Year
  Sex: Female
  Weight: 74 kg

DRUGS (6)
  1. ZETIA [Suspect]
     Indication: HYPERLIPIDAEMIA
     Route: 048
     Dates: start: 20060207, end: 20060218
  2. ACEBUTOLOL HYDROCHLORIDE [Concomitant]
     Route: 048
  3. ASPIRIN [Concomitant]
     Route: 048
  4. LEVOTHYROXINE SODIUM [Concomitant]
     Indication: THYROID DISORDER
     Route: 048
  5. VERAPAMIL HYDROCHLORIDE [Concomitant]
     Indication: MYOCARDIAL ISCHAEMIA
     Route: 048
     Dates: start: 20060220
  6. PERINDOPRIL ERBUMINE [Concomitant]
     Indication: MYOCARDIAL ISCHAEMIA
     Route: 048
     Dates: start: 20060113

REACTIONS (12)
  - ARTHRALGIA [None]
  - ATRIAL FIBRILLATION [None]
  - BONE PAIN [None]
  - DYSURIA [None]
  - FATIGUE [None]
  - HYPERHIDROSIS [None]
  - HYPERTENSION [None]
  - LIVER DISORDER [None]
  - MYALGIA [None]
  - NAUSEA [None]
  - RENAL DISORDER [None]
  - VAGINAL CANDIDIASIS [None]
